FAERS Safety Report 6787710-6 (Version None)
Quarter: 2010Q2

REPORT INFORMATION
  Report Type: 
  Country: None (occurrence: None)
  Receive Date: 20100621
  Receipt Date: 20100524
  Transmission Date: 20101027
  Serious: Yes (Life-Threatening, Hospitalization)
  Sender: FDA-Public Use
  Company Number: 602515

PATIENT
  Age: 64 Year
  Sex: Male

DRUGS (10)
  1. CYTARABINE [Suspect]
     Dosage: INTRAVENOUS
     Route: 042
     Dates: start: 20100507, end: 20100511
  2. FLUDARABINE PHOSPHATE [Concomitant]
  3. ACYCLOVIR [Concomitant]
  4. ALLOPURINOL [Concomitant]
  5. CIPROFLOXACIN [Concomitant]
  6. COTRIM [Concomitant]
  7. TRIMETHOPRIM [Concomitant]
  8. IDARUBICIN HCL [Concomitant]
  9. ITRACONAZOLE [Concomitant]
  10. PREDNISOLONE [Concomitant]

REACTIONS (1)
  - CYTARABINE SYNDROME [None]
